FAERS Safety Report 20805031 (Version 1)
Quarter: 2022Q2

REPORT INFORMATION
  Report Type: Spontaneous
  Country: US (occurrence: US)
  Receive Date: 20220509
  Receipt Date: 20220509
  Transmission Date: 20220721
  Serious: No
  Sender: FDA-Public Use
  Company Number: US-PFIZER INC-202200299699

PATIENT
  Age: 64 Year
  Sex: Female

DRUGS (1)
  1. EXEMESTANE [Suspect]
     Active Substance: EXEMESTANE
     Dosage: 25 MG, 1X/DAY

REACTIONS (1)
  - Swelling [Unknown]
